FAERS Safety Report 4424260-6 (Version None)
Quarter: 2004Q3

REPORT INFORMATION
  Report Type: 
  Country: None (occurrence: None)
  Receive Date: 20040810
  Receipt Date: 20040810
  Transmission Date: 20050211
  Serious: No
  Sender: FDA-Public Use
  Company Number: None

PATIENT
  Age: 54 Year
  Weight: 54.4316 kg

DRUGS (1)
  1. BOTOX (DO NOT KNOW THE STRENGTH) [Suspect]

REACTIONS (4)
  - NEURALGIA [None]
  - NEURITIS [None]
  - SLEEP DISORDER [None]
  - TREMOR [None]
